FAERS Safety Report 4309091-X (Version None)
Quarter: 2004Q1

REPORT INFORMATION
  Report Type: 
  Country: None (occurrence: None)
  Receive Date: 20040302
  Receipt Date: 20040225
  Transmission Date: 20041129
  Serious: Yes (Hospitalization)
  Sender: FDA-Public Use
  Company Number: US-GLAXOSMITHKLINE-A0499689A

PATIENT
  Age: 53 Year
  Sex: Male

DRUGS (21)
  1. MELPHALAN [Suspect]
     Indication: MULTIPLE MYELOMA
     Dosage: 200MGM2 PER DAY
     Route: 042
     Dates: start: 20030722, end: 20030722
  2. THALIDOMIDE [Suspect]
     Indication: MULTIPLE MYELOMA
     Dosage: 100MG PER DAY
     Route: 048
     Dates: start: 20030924
  3. ACYCLOVIR [Concomitant]
     Indication: HERPES VIRUS INFECTION
     Dosage: 400MG TWICE PER DAY
  4. PROTONIX [Concomitant]
     Indication: GASTROOESOPHAGEAL REFLUX DISEASE
     Dosage: 40MG TWICE PER DAY
  5. FOLATE [Concomitant]
     Indication: NUTRITIONAL SUPPORT
  6. COUMADIN [Concomitant]
  7. LIPITOR [Concomitant]
     Indication: HYPERLIPIDAEMIA
  8. NIFEREX [Concomitant]
     Indication: NUTRITIONAL SUPPORT
  9. NEURONTIN [Concomitant]
     Indication: EPILEPSY
     Dosage: 300MG PER DAY
     Route: 048
  10. PROCRIT [Concomitant]
     Indication: ANAEMIA
     Dosage: 40000UNIT WEEKLY
     Route: 058
  11. LIDODERM PATCH [Concomitant]
     Indication: PAIN
     Route: 061
  12. MULTI-VITAMIN [Concomitant]
  13. CALCIUM [Concomitant]
     Dosage: 600MG TWICE PER DAY
  14. VITAMIN E [Concomitant]
  15. METAMUCIL-2 [Concomitant]
  16. VANCOMYCIN [Concomitant]
     Dosage: 1.25G TWICE PER DAY
     Route: 042
  17. AREDIA [Concomitant]
     Indication: OSTEOPOROSIS PROPHYLAXIS
     Dosage: 90MG MONTHLY
  18. LORTAB [Concomitant]
     Dosage: 2TAB CUMULATIVE DOSE
  19. DOXYCYCLINE [Concomitant]
     Dosage: 100MG TWICE PER DAY
     Route: 048
  20. MEDROL [Concomitant]
  21. ZOSYN [Concomitant]

REACTIONS (13)
  - ANAEMIA [None]
  - BACK PAIN [None]
  - COUGH [None]
  - EXOSTOSIS [None]
  - HYPOCALCAEMIA [None]
  - HYPOXIA [None]
  - INTERVERTEBRAL DISCITIS [None]
  - NEUTROPENIA [None]
  - OSTEOMYELITIS [None]
  - OSTEOSCLEROSIS [None]
  - PYREXIA [None]
  - SPINAL OSTEOARTHRITIS [None]
  - STAPHYLOCOCCAL BACTERAEMIA [None]
